FAERS Safety Report 15710334 (Version 1)
Quarter: 2018Q4

REPORT INFORMATION
  Report Type: Report from Study
  Country: US (occurrence: US)
  Receive Date: 20181211
  Receipt Date: 20181211
  Transmission Date: 20190205
  Serious: Yes (Death)
  Sender: FDA-Public Use
  Company Number: US-MYLANLABS-2018M1088747

PATIENT

DRUGS (7)
  1. CLOFARABINE. [Suspect]
     Active Substance: CLOFARABINE
     Indication: PROPHYLAXIS
     Dosage: INFUSION; STARTED EIGHT DAYS BEFORE HAEMATOPOETIC CELL TRANSPLANT
     Route: 065
  2. MELPHALAN. [Suspect]
     Active Substance: MELPHALAN
     Indication: PROPHYLAXIS
     Dosage: 60 MG/M2/DOSE ON DAYS 1 AND 2 BEFORE HAEMATOPOETIC CELL TRANSPLANT
     Route: 065
  3. MUROMONAB-CD3 [Suspect]
     Active Substance: MUROMONAB-CD3
     Indication: PROPHYLAXIS
     Dosage: RECEIVED DAILY FROM NINE DAYS BEFORE HCT TILL 17 DAYS POST HAEMATOPOETIC CELL TRANSPLANT
     Route: 065
  4. MYCOPHENOLATE MOFETIL. [Concomitant]
     Active Substance: MYCOPHENOLATE MOFETIL
     Indication: PROPHYLAXIS AGAINST GRAFT VERSUS HOST DISEASE
     Dosage: STARTED TWO DAYS BEFORE HAEMATOPOETIC CELL TRANSPLANT WITH THE GOAL OF STOPPING ADMINISTRATION BY...
     Route: 065
  5. THIOTEPA. [Suspect]
     Active Substance: THIOTEPA
     Indication: PROPHYLAXIS
     Dosage: RECEIVED TWO DOSES 12 HOURS APART, THREE DAYS BEFORE HAEMATOPOETIC CELL TRANSPLANT
     Route: 065
  6. FOSPHENYTOIN [Concomitant]
     Active Substance: FOSPHENYTOIN
     Indication: SEIZURE PROPHYLAXIS
     Route: 065
  7. RITUXIMAB. [Concomitant]
     Active Substance: RITUXIMAB
     Indication: PROPHYLAXIS
     Dosage: RECEIVED 375 MG/M2 ONE DAY BEFORE HAEMATOPOETIC CELL TRANSPLANT
     Route: 065

REACTIONS (1)
  - Pulmonary veno-occlusive disease [Fatal]
